FAERS Safety Report 9911273 (Version 1)
Quarter: 2014Q1

REPORT INFORMATION
  Report Type: Spontaneous
  Country: US (occurrence: US)
  Receive Date: 20140219
  Receipt Date: 20140219
  Transmission Date: 20141002
  Serious: No
  Sender: FDA-Public Use
  Company Number: US-GILEAD-2012-0056162

PATIENT
  Sex: Female

DRUGS (9)
  1. LETAIRIS [Suspect]
     Indication: PULMONARY HYPERTENSION
     Dosage: 10 MG, UNK
     Route: 048
     Dates: start: 20120412
  2. LISINOPRIL [Concomitant]
  3. POTASSIUM CHLORIDE [Concomitant]
  4. COUMADIN                           /00014802/ [Concomitant]
  5. DOCUSATE [Concomitant]
  6. FUROSEMIDE [Concomitant]
  7. IBUPROFEN [Concomitant]
  8. LEVOTHYROXINE [Concomitant]
  9. OXYGEN [Concomitant]

REACTIONS (3)
  - Dizziness [Unknown]
  - Headache [Unknown]
  - Sinusitis [Recovered/Resolved]
